FAERS Safety Report 8778385 (Version 2)
Quarter: 2013Q4

REPORT INFORMATION
  Report Type: Spontaneous
  Country: FR (occurrence: FR)
  Receive Date: 20120911
  Receipt Date: 20131105
  Transmission Date: 20140711
  Serious: Yes (Hospitalization, Disabling)
  Sender: FDA-Public Use
  Company Number: FR-009507513-1111USA01085

PATIENT
  Age: 45 Year
  Sex: Female
  Weight: 43 kg

DRUGS (8)
  1. ISENTRESS [Suspect]
     Route: 048
     Dates: start: 20090422
  2. TRUVADA [Suspect]
     Indication: HIV INFECTION
     Route: 048
     Dates: start: 20090422
  3. CYMEVAN IV [Concomitant]
  4. VISTIDE [Concomitant]
  5. VIRACEPT [Concomitant]
  6. EPIVIR [Concomitant]
  7. ZERIT [Concomitant]
  8. TRIZIVIR [Concomitant]

REACTIONS (1)
  - Osteonecrosis [Recovering/Resolving]
